FAERS Safety Report 5568700-8 (Version None)
Quarter: 2007Q4

REPORT INFORMATION
  Report Type: 
  Country: None (occurrence: None)
  Receive Date: 20071220
  Receipt Date: 20070518
  Transmission Date: 20080405
  Serious: No
  Sender: FDA-Public Use
  Company Number: A0626052A

PATIENT
  Age: 84 Year
  Sex: Male

DRUGS (7)
  1. AVODART [Suspect]
     Dosage: .5MG PER DAY
     Route: 048
     Dates: start: 20061017
  2. BUFFERIN ASA [Concomitant]
  3. IMDUR [Concomitant]
  4. ASCORBIC ACID [Concomitant]
  5. M.V.I. [Concomitant]
  6. FISH OIL [Concomitant]
  7. UNSPECIFIED MEDICATION [Concomitant]

REACTIONS (2)
  - DYSURIA [None]
  - ERYTHEMA [None]
